FAERS Safety Report 7887853 (Version 2)
Quarter: 2014Q1

REPORT INFORMATION
  Report Type: Spontaneous
  Country: US (occurrence: US)
  Receive Date: 20110406
  Receipt Date: 20140121
  Transmission Date: 20141002
  Serious: Yes (Other)
  Sender: FDA-Public Use
  Company Number: US-BAYER-2011-028959

PATIENT
  Age: 25 Year
  Sex: Female

DRUGS (4)
  1. YAZ [Suspect]
     Dosage: UNK
     Dates: start: 200201, end: 200910
  2. YASMIN [Suspect]
     Dosage: UNK
     Dates: start: 200201, end: 200910
  3. OCELLA [Suspect]
     Dosage: UNK
     Dates: start: 200201, end: 200910
  4. HYDROCODONE/ACETAMINOPHEN [Concomitant]
     Dosage: 5MG/500MG TAKE ONE TID PRN
     Route: 048
     Dates: start: 20040323, end: 20081216

REACTIONS (3)
  - Cholelithiasis [Recovered/Resolved]
  - Pain [None]
  - Injury [Unknown]
